FAERS Safety Report 6408678-8 (Version None)
Quarter: 2009Q4

REPORT INFORMATION
  Report Type: 
  Country: None (occurrence: None)
  Receive Date: 20091019
  Receipt Date: 20070312
  Transmission Date: 20100525
  Serious: Yes (Other)
  Sender: FDA-Public Use
  Company Number: 2009011206

PATIENT
  Age: 62 Year
  Sex: Female
  Weight: 65 kg

DRUGS (8)
  1. ACTIQ [Suspect]
     Dosage: BU
     Route: 002
  2. DEXAMETHASONE TAB [Suspect]
  3. ONDANSETRON [Suspect]
  4. PROPOFOL [Suspect]
  5. SUXAMETHONIUM (SUXAMETHONIUM) [Suspect]
     Indication: MUSCLE RELAXANT THERAPY
     Dosage: (100 MG), INTRAVENOUS
     Route: 042
  6. FUROSEMIDE [Concomitant]
  7. SIMVASTATIN [Concomitant]
  8. VENTOLIN [Concomitant]

REACTIONS (2)
  - ANAESTHETIC COMPLICATION CARDIAC [None]
  - CARDIAC ARREST [None]
